FAERS Safety Report 22599790 (Version 1)
Quarter: 2023Q2

REPORT INFORMATION
  Report Type: Report from Study
  Country: FR (occurrence: None)
  Receive Date: 20230614
  Receipt Date: 20230614
  Transmission Date: 20230722
  Serious: Yes (Death)
  Sender: FDA-Public Use
  Company Number: FR-Eisai Medical Research-EC-2023-142412

PATIENT
  Age: 73 Year
  Sex: Female

DRUGS (3)
  1. LENVIMA [Suspect]
     Active Substance: LENVATINIB
     Indication: Endometrial cancer
     Route: 048
     Dates: start: 202205, end: 2022
  2. LENVIMA [Suspect]
     Active Substance: LENVATINIB
     Route: 048
     Dates: start: 2022
  3. KEYTRUDA [Concomitant]
     Active Substance: PEMBROLIZUMAB
     Indication: Endometrial cancer
     Dosage: DOSE AND FREQUENCY UNKNOWN

REACTIONS (1)
  - Acute leukaemia [Fatal]

NARRATIVE: CASE EVENT DATE: 20221201
